FAERS Safety Report 6088233-2 (Version None)
Quarter: 2009Q1

REPORT INFORMATION
  Report Type: 
  Country: None (occurrence: None)
  Receive Date: 20090224
  Receipt Date: 20090123
  Transmission Date: 20090719
  Serious: No
  Sender: FDA-Public Use
  Company Number: US-BAYER-200910260BCC

PATIENT
  Age: 61 Year
  Sex: Female
  Weight: 52 kg

DRUGS (7)
  1. ALEVE (CAPLET) [Suspect]
     Indication: ARTHRITIS
     Dosage: TOTAL DAILY DOSE: 440 MG  UNIT DOSE: 220 MG
     Route: 048
     Dates: start: 20090119
  2. TYLENOL [Concomitant]
  3. ATENOLOL [Concomitant]
  4. FLONASE [Concomitant]
  5. CLARITIN [Concomitant]
  6. ESTROGENIC SUBSTANCE [Concomitant]
     Route: 062
  7. PROGESTERONE [Concomitant]

REACTIONS (1)
  - FLUID RETENTION [None]
